FAERS Safety Report 11219430 (Version 3)
Quarter: 2015Q3

REPORT INFORMATION
  Report Type: Spontaneous
  Country: US (occurrence: US)
  Receive Date: 20150625
  Receipt Date: 20150804
  Transmission Date: 20151125
  Serious: No
  Sender: FDA-Public Use
  Company Number: US-SHIRE-US201506528

PATIENT
  Age: 8 Year
  Sex: Male
  Weight: 24.94 kg

DRUGS (2)
  1. VYVANSE [Suspect]
     Active Substance: LISDEXAMFETAMINE DIMESYLATE
     Dosage: 20 MG, 1X/DAY:QD
     Route: 048
     Dates: start: 20150615
  2. VYVANSE [Suspect]
     Active Substance: LISDEXAMFETAMINE DIMESYLATE
     Indication: ATTENTION DEFICIT/HYPERACTIVITY DISORDER
     Dosage: 10 MG, 1X/DAY:QD
     Route: 048
     Dates: start: 201503, end: 20150603

REACTIONS (11)
  - Social avoidant behaviour [Not Recovered/Not Resolved]
  - Irritability [Not Recovered/Not Resolved]
  - Feeling jittery [Not Recovered/Not Resolved]
  - Eye pruritus [Recovered/Resolved]
  - Anxiety [Not Recovered/Not Resolved]
  - Nasal discomfort [Not Recovered/Not Resolved]
  - Drug effect decreased [Not Recovered/Not Resolved]
  - Strabismus [Not Recovered/Not Resolved]
  - Visual impairment [Recovered/Resolved]
  - Decreased appetite [Not Recovered/Not Resolved]
  - Stubbornness [Not Recovered/Not Resolved]

NARRATIVE: CASE EVENT DATE: 201503
